FAERS Safety Report 7126217-3 (Version None)
Quarter: 2010Q4

REPORT INFORMATION
  Report Type: 
  Country: None (occurrence: None)
  Receive Date: 20101129
  Receipt Date: 20101115
  Transmission Date: 20110411
  Serious: Yes (Hospitalization)
  Sender: FDA-Public Use
  Company Number: DE-ROCHE-743500

PATIENT
  Sex: Female

DRUGS (8)
  1. TRASTUZUMAB [Suspect]
     Indication: BREAST CANCER
     Dosage: 4 MG/KG LOADING DOSE THEN 2 MG/KG WEEKLY.
     Route: 042
     Dates: start: 20100305
  2. TRASTUZUMAB [Suspect]
     Route: 042
     Dates: start: 20100726
  3. PACLITAXEL [Suspect]
     Indication: BREAST CANCER
     Route: 042
     Dates: start: 20100305
  4. PACLITAXEL [Suspect]
     Route: 042
     Dates: start: 20100726
  5. LAPATINIB [Suspect]
     Indication: BREAST CANCER
     Route: 048
     Dates: start: 20100814
  6. PANTOPRAZOLE [Concomitant]
  7. MOVICOL [Concomitant]
  8. NADROPARIN CALCIUM [Concomitant]

REACTIONS (1)
  - DIVERTICULITIS [None]
